FAERS Safety Report 16804711 (Version 1)
Quarter: 2019Q3

REPORT INFORMATION
  Report Type: Spontaneous
  Country: FI (occurrence: FI)
  Receive Date: 20190913
  Receipt Date: 20190913
  Transmission Date: 20191005
  Serious: Yes (Disabling)
  Sender: FDA-Public Use
  Company Number: FI-TEVA-2019-FI-1105634

PATIENT
  Age: 44 Year
  Sex: Female

DRUGS (2)
  1. FENTORA [Suspect]
     Active Substance: FENTANYL CITRATE
     Indication: NEURALGIA
     Dates: start: 20190816, end: 20190820
  2. ABSTRAL [Concomitant]
     Active Substance: FENTANYL CITRATE
     Indication: NEURALGIA
     Route: 048
     Dates: start: 2014

REACTIONS (9)
  - Muscle spasms [Recovering/Resolving]
  - Thinking abnormal [Recovering/Resolving]
  - Erythema [Recovering/Resolving]
  - Rash [Recovering/Resolving]
  - Device issue [Recovering/Resolving]
  - Memory impairment [Recovering/Resolving]
  - Malaise [Recovering/Resolving]
  - Secretion discharge [Recovering/Resolving]
  - Pruritus [Recovering/Resolving]

NARRATIVE: CASE EVENT DATE: 20190816
